FAERS Safety Report 11242854 (Version 2)
Quarter: 2015Q4

REPORT INFORMATION
  Report Type: Report from Study
  Country: DE (occurrence: DE)
  Receive Date: 20150707
  Receipt Date: 20151125
  Transmission Date: 20160304
  Serious: Yes (Other)
  Sender: FDA-Public Use
  Company Number: DE-ABBVIE-15K-062-1419699-00

PATIENT
  Sex: Male
  Weight: 68 kg

DRUGS (3)
  1. BUDENOFALK [Concomitant]
     Active Substance: BUDESONIDE
     Indication: COLITIS
     Dates: start: 201307
  2. HUMIRA [Suspect]
     Active Substance: ADALIMUMAB
     Indication: RHEUMATOID ARTHRITIS
     Route: 058
  3. ENBREL [Concomitant]
     Active Substance: ETANERCEPT
     Indication: PRODUCT USED FOR UNKNOWN INDICATION

REACTIONS (2)
  - Drug intolerance [Unknown]
  - Rhabdomyolysis [Recovering/Resolving]
